FAERS Safety Report 11561387 (Version 1)
Quarter: 2015Q3

REPORT INFORMATION
  Report Type: Spontaneous
  Country: DE (occurrence: DE)
  Receive Date: 20150928
  Receipt Date: 20150928
  Transmission Date: 20151125
  Serious: Yes (Disabling)
  Sender: FDA-Public Use
  Company Number: GXKR2015DE004450

PATIENT

DRUGS (1)
  1. LEVOFLOXACIN. [Suspect]
     Active Substance: LEVOFLOXACIN
     Indication: SINUSITIS
     Dosage: 500 MG, UNK
     Route: 048
     Dates: start: 20140505

REACTIONS (13)
  - Eye disorder [Unknown]
  - Joint crepitation [Unknown]
  - Multiple sclerosis [Unknown]
  - Walking disability [Unknown]
  - Coordination abnormal [Unknown]
  - Hypoaesthesia [Unknown]
  - Muscle spasms [Unknown]
  - Balance disorder [Unknown]
  - Tendon calcification [Recovered/Resolved with Sequelae]
  - Tendon pain [Unknown]
  - Dysaesthesia [Unknown]
  - Visual impairment [Unknown]
  - Asthenia [Unknown]

NARRATIVE: CASE EVENT DATE: 20140505
